FAERS Safety Report 7639439-X (Version None)
Quarter: 2011Q3

REPORT INFORMATION
  Report Type: 
  Country: None (occurrence: None)
  Receive Date: 20110727
  Receipt Date: 20110718
  Transmission Date: 20111222
  Serious: Yes (Hospitalization)
  Sender: FDA-Public Use
  Company Number: US-GLAXOSMITHKLINE-A0904258A

PATIENT
  Age: 59 Year
  Sex: Male

DRUGS (5)
  1. LAMICTAL [Suspect]
     Route: 065
     Dates: start: 20060101, end: 20060331
  2. LAMOTRIGINE [Suspect]
     Indication: BIPOLAR DISORDER
     Route: 048
  3. NITRAZEPAM [Concomitant]
     Indication: INSOMNIA
  4. CELEXA [Suspect]
     Route: 065
     Dates: end: 20060101
  5. PROZAC [Suspect]
     Route: 065
     Dates: end: 20060101

REACTIONS (26)
  - STEVENS-JOHNSON SYNDROME [None]
  - COUGH [None]
  - MALAISE [None]
  - CONJUNCTIVAL HYPERAEMIA [None]
  - HYPERSENSITIVITY [None]
  - ADVERSE DRUG REACTION [None]
  - ILL-DEFINED DISORDER [None]
  - TESTICULAR PAIN [None]
  - DYSPHAGIA [None]
  - LIP EROSION [None]
  - STOMATITIS [None]
  - ERYTHEMA [None]
  - SCROTAL ULCER [None]
  - RASH [None]
  - ORAL MUCOSA EROSION [None]
  - ORAL PAIN [None]
  - GAIT DISTURBANCE [None]
  - SKIN LESION [None]
  - BLISTER [None]
  - INFECTION [None]
  - SKIN ULCER [None]
  - DYSURIA [None]
  - SCAB [None]
  - SALIVA ALTERED [None]
  - PAIN IN EXTREMITY [None]
  - GINGIVAL ERYTHEMA [None]
